FAERS Safety Report 9346276 (Version 4)
Quarter: 2013Q3

REPORT INFORMATION
  Report Type: Report from Study
  Country: US (occurrence: US)
  Receive Date: 20130613
  Receipt Date: 20130716
  Transmission Date: 20140515
  Serious: Yes (Hospitalization, Other)
  Sender: FDA-Public Use
  Company Number: US-ACTELION-A-NJ2008-20674

PATIENT
  Age: 76 Year
  Sex: Female

DRUGS (2)
  1. TRACLEER [Suspect]
     Indication: PULMONARY ARTERIAL HYPERTENSION
     Dosage: UNK UNK, BID
     Route: 048
     Dates: start: 20041214
  2. COUMADIN [Concomitant]

REACTIONS (9)
  - Mastectomy [Unknown]
  - Rectal neoplasm [Unknown]
  - Colectomy [Unknown]
  - Gallbladder disorder [Not Recovered/Not Resolved]
  - Cholecystectomy [Unknown]
  - Fluid retention [Unknown]
  - Cholecystitis [Unknown]
  - Liver function test abnormal [Unknown]
  - Cholelithiasis [Unknown]
